FAERS Safety Report 4436573-2 (Version None)
Quarter: 2004Q3

REPORT INFORMATION
  Report Type: 
  Country: None (occurrence: None)
  Receive Date: 20040830
  Receipt Date: 20040630
  Transmission Date: 20050211
  Serious: No
  Sender: FDA-Public Use
  Company Number: US-BRISTOL-MYERS SQUIBB COMPANY-12629168

PATIENT
  Age: 42 Year
  Sex: Female

DRUGS (3)
  1. ABILIFY [Suspect]
     Route: 048
  2. DANTRIUM [Concomitant]
  3. EFFEXOR XR [Concomitant]

REACTIONS (2)
  - MICTURITION URGENCY [None]
  - URINARY INCONTINENCE [None]
